FAERS Safety Report 14307370 (Version 1)
Quarter: 2017Q4

REPORT INFORMATION
  Report Type: Spontaneous
  Country: US (occurrence: US)
  Receive Date: 20171220
  Receipt Date: 20171220
  Transmission Date: 20180321
  Serious: No
  Sender: FDA-Public Use
  Company Number: US-PFIZER INC-2017536436

PATIENT
  Age: 39 Year
  Sex: Female
  Weight: 60.33 kg

DRUGS (15)
  1. GLYCOPYRROLATE. [Concomitant]
     Active Substance: GLYCOPYRROLATE
     Indication: HYPERHIDROSIS
     Dosage: 1 MG, 2X/DAY
     Route: 048
     Dates: start: 201703
  2. ERYTHROMYCIN. [Concomitant]
     Active Substance: ERYTHROMYCIN
     Indication: IMPAIRED GASTRIC EMPTYING
     Dosage: 250 MG, 1X/DAY (MORNING)
     Route: 048
     Dates: start: 201611
  3. LAMICTAL [Concomitant]
     Active Substance: LAMOTRIGINE
     Indication: BIPOLAR DISORDER
  4. ACICLOVIR [Suspect]
     Active Substance: ACYCLOVIR
     Dosage: 400 MG, 2X/DAY
     Route: 048
     Dates: start: 2006
  5. EVAMIST [Concomitant]
     Active Substance: ESTRADIOL
     Indication: HORMONE LEVEL ABNORMAL
     Dosage: UNK UNK, 1X/DAY (ONE SPRAY ONCE A DAY ON HER ARM)
     Route: 062
     Dates: start: 201703
  6. TRAZODONE [Concomitant]
     Active Substance: TRAZODONE HYDROCHLORIDE
     Indication: INSOMNIA
     Dosage: 150 MG, 1X/DAY (AT NIGHT)
     Route: 048
     Dates: start: 2014
  7. ATROPINE SULFATE/DIPHENOXYLATE HYDROCHLORIDE [Suspect]
     Active Substance: ATROPINE SULFATE\DIPHENOXYLATE HYDROCHLORIDE
     Dosage: UNK, 2X/DAY (2.5-0.025 MG, TWICE A DAY )
     Route: 048
  8. DOMPERIDONE [Concomitant]
     Active Substance: DOMPERIDONE
     Indication: IMPAIRED GASTRIC EMPTYING
     Dosage: 10 MG, UNK (WITH FOOD)
     Route: 048
     Dates: start: 201611
  9. STELARA [Concomitant]
     Active Substance: USTEKINUMAB
     Indication: PSORIASIS
     Dosage: 45 MG, CYCLIC (EVERY 12 WEEKS)
     Route: 058
     Dates: start: 201702
  10. MAXALT [Concomitant]
     Active Substance: RIZATRIPTAN BENZOATE
     Indication: MIGRAINE
     Dosage: 10 MG, AS NEEDED
     Route: 048
     Dates: start: 201512
  11. LAMICTAL [Concomitant]
     Active Substance: LAMOTRIGINE
     Indication: MOOD SWINGS
     Dosage: 50 MG, 1X/DAY (IN THE MORNING)
     Route: 048
     Dates: start: 20170824
  12. PROGESTERONE. [Concomitant]
     Active Substance: PROGESTERONE
     Indication: HORMONE LEVEL ABNORMAL
     Dosage: 200 MG, UNK (AT NIGHT)
     Route: 048
     Dates: start: 201703
  13. REMERON [Concomitant]
     Active Substance: MIRTAZAPINE
     Indication: INSOMNIA
     Dosage: 7.5 MG, 1X/DAY (AT NIGHT)
     Route: 048
     Dates: start: 2014
  14. ACICLOVIR [Suspect]
     Active Substance: ACYCLOVIR
     Indication: HERPES OPHTHALMIC
     Dosage: UNK, AS NEEDED (WHENEVER I HAD AN OUTBREAK)
  15. CARVEDILOL. [Concomitant]
     Active Substance: CARVEDILOL
     Indication: SUPRAVENTRICULAR TACHYCARDIA
     Dosage: 25 MG, 2X/DAY
     Route: 048
     Dates: start: 2012

REACTIONS (3)
  - Product use issue [Unknown]
  - Aspartate aminotransferase increased [Not Recovered/Not Resolved]
  - Alanine aminotransferase increased [Not Recovered/Not Resolved]
